FAERS Safety Report 19452907 (Version 1)
Quarter: 2021Q2

REPORT INFORMATION
  Report Type: Spontaneous
  Country: ES (occurrence: ES)
  Receive Date: 20210623
  Receipt Date: 20210623
  Transmission Date: 20210717
  Serious: Yes (Death, Hospitalization)
  Sender: FDA-Public Use
  Company Number: ES-ACCORD-228942

PATIENT
  Age: 73 Year
  Sex: Male

DRUGS (2)
  1. FLUOROURACIL. [Suspect]
     Active Substance: FLUOROURACIL
     Indication: ADENOCARCINOMA PANCREAS
     Dosage: FIRST CYCLE RECEIVED ON 26/01/21 WITH DOSE ADJUSTED TO 75% (EXACT DOSE?UNKNOWN)
     Route: 042
     Dates: start: 20210126, end: 20210205
  2. IRINOTECAN [Suspect]
     Active Substance: IRINOTECAN
     Indication: ADENOCARCINOMA PANCREAS
     Dosage: FIRST CYCLE RECEIVED ON 26/01/21 WITH DOSE TO 75% (EXACT DOSE?UNKNOWN)
     Route: 042
     Dates: start: 20210126, end: 20210205

REACTIONS (2)
  - Neutropenia [Not Recovered/Not Resolved]
  - Oesophagitis [Not Recovered/Not Resolved]

NARRATIVE: CASE EVENT DATE: 20210205
